FAERS Safety Report 5048001-7 (Version None)
Quarter: 2006Q3

REPORT INFORMATION
  Report Type: 
  Country: None (occurrence: None)
  Receive Date: 20060710
  Receipt Date: 20060710
  Transmission Date: 20061208
  Serious: Yes (Other)
  Sender: FDA-Public Use
  Company Number: None

PATIENT
  Age: 51 Year
  Sex: Male
  Weight: 90.7194 kg

DRUGS (1)
  1. EFFEXOR [Suspect]
     Indication: DIVORCED
     Dosage: 75MG  ONE PER DAY  PO
     Route: 048
     Dates: start: 20051001, end: 20060610

REACTIONS (14)
  - AGITATION [None]
  - ALCOHOLISM [None]
  - ANGER [None]
  - CRYING [None]
  - DEPRESSED MOOD [None]
  - DISTURBANCE IN ATTENTION [None]
  - DIZZINESS [None]
  - DRUG WITHDRAWAL SYNDROME [None]
  - EMOTIONAL DISORDER [None]
  - FEELING ABNORMAL [None]
  - FOOD CRAVING [None]
  - HALLUCINATION, AUDITORY [None]
  - IMPAIRED WORK ABILITY [None]
  - PARAESTHESIA [None]
